FAERS Safety Report 24798262 (Version 2)
Quarter: 2025Q1

REPORT INFORMATION
  Report Type: Spontaneous
  Country: US (occurrence: US)
  Receive Date: 20250102
  Receipt Date: 20250113
  Transmission Date: 20250409
  Serious: No
  Sender: AMGEN
  Company Number: US-AMGEN-USASP2024256240

PATIENT
  Age: 75 Year
  Sex: Female

DRUGS (17)
  1. REPATHA [Suspect]
     Active Substance: EVOLOCUMAB
     Indication: Low density lipoprotein increased
     Dosage: 140 MILLIGRAM, Q2WK
     Route: 058
     Dates: start: 20230809
  2. REPATHA [Suspect]
     Active Substance: EVOLOCUMAB
     Indication: Ischaemic heart disease prophylaxis
  3. REPATHA [Suspect]
     Active Substance: EVOLOCUMAB
     Indication: Transient ischaemic attack
  4. HYDROCHLOROTHIAZIDE [Concomitant]
     Active Substance: HYDROCHLOROTHIAZIDE
     Dates: start: 2021
  5. HYDROCHLOROTHIAZIDE [Concomitant]
     Active Substance: HYDROCHLOROTHIAZIDE
  6. VITAMIN B12 [Concomitant]
     Active Substance: CYANOCOBALAMIN
  7. VITAMIN B12 [Concomitant]
     Active Substance: CYANOCOBALAMIN
  8. ESTROGENS [Concomitant]
     Active Substance: ESTROGENS
  9. CALTRATE WITH VITAMIN D [Concomitant]
     Active Substance: CALCIUM CARBONATE\CHOLECALCIFEROL
  10. MINERALS\VITAMINS [Concomitant]
     Active Substance: MINERALS\VITAMINS
  11. VITAMIN D3 [Concomitant]
     Active Substance: CHOLECALCIFEROL
  12. ARTIFICIAL TEAR [Concomitant]
     Active Substance: LANOLIN\MINERAL OIL\PETROLATUM
     Indication: Dry eye
  13. ASPIRIN [Concomitant]
     Active Substance: ASPIRIN
  14. MECLIZINE [Concomitant]
     Active Substance: MECLIZINE HYDROCHLORIDE
     Indication: Vertigo
  15. OMEPRAZOLE [Concomitant]
     Active Substance: OMEPRAZOLE
     Indication: Abdominal pain upper
  16. OMEPRAZOLE [Concomitant]
     Active Substance: OMEPRAZOLE
     Indication: Abdominal pain upper
  17. PRILOSEC [Concomitant]
     Active Substance: OMEPRAZOLE MAGNESIUM

REACTIONS (9)
  - Adverse drug reaction [Unknown]
  - Pain [Unknown]
  - Muscle spasms [Unknown]
  - Impaired quality of life [Unknown]
  - Contusion [Unknown]
  - Dysstasia [Unknown]
  - Gait disturbance [Unknown]
  - Back pain [Unknown]
  - Tendonitis [Recovering/Resolving]

NARRATIVE: CASE EVENT DATE: 20230801
